FAERS Safety Report 3800617 (Version 2)
Quarter: 2020Q3

REPORT INFORMATION
  Report Type: Report from Study
  Country: SE (occurrence: SE)
  Receive Date: 20020603
  Receipt Date: 20060829
  Transmission Date: 20201104
  Serious: Yes (Hospitalization, Disabling)
  Sender: FDA-Public Use
  Company Number: EMADSS2002003281

PATIENT
  Age: 84 Year
  Sex: Male
  Weight: 60 kg

DRUGS (9)
  1. LACTULOSE. [Concomitant]
     Active Substance: LACTULOSE
     Indication: CONSTIPATION
     Route: 048
  2. OXYMETAZOLINE HYDROCHLORIDE. [Concomitant]
     Active Substance: OXYMETAZOLINE HYDROCHLORIDE
     Indication: NASOPHARYNGITIS
     Route: 045
  3. TIMOLOL MALEATE. [Concomitant]
     Active Substance: TIMOLOL MALEATE
     Indication: GLAUCOMA
     Route: 047
  4. GALANTAMINE HYDROBROMIDE. [Suspect]
     Active Substance: GALANTAMINE HYDROBROMIDE
     Indication: DEMENTIA
     Route: 048
     Dates: start: 20020424, end: 20020522
  5. ISOSORBIDE MONONITRATE. [Concomitant]
     Active Substance: ISOSORBIDE MONONITRATE
     Indication: ANGINA PECTORIS
     Route: 048
  6. ALVEDON [Concomitant]
     Indication: BACK PAIN
     Route: 065
  7. INOLAXOL [Concomitant]
     Indication: CONSTIPATION
     Route: 048
  8. GALANTAMINE HYDROBROMIDE. [Suspect]
     Active Substance: GALANTAMINE HYDROBROMIDE
     Route: 048
     Dates: start: 20020424, end: 20020522
  9. NITROGLYCERIN. [Concomitant]
     Active Substance: NITROGLYCERIN
     Indication: ANGINA PECTORIS
     Route: 048

REACTIONS (3)
  - Dizziness [Unknown]
  - Cardiac failure [None]
  - Angina unstable [Recovered/Resolved]

NARRATIVE: CASE EVENT DATE: 20020505
